FAERS Safety Report 7134234-2 (Version None)
Quarter: 2010Q4

REPORT INFORMATION
  Report Type: 
  Country: None (occurrence: None)
  Receive Date: 20101203
  Receipt Date: 20101130
  Transmission Date: 20110411
  Serious: Yes (Life-Threatening, Other)
  Sender: FDA-Public Use
  Company Number: IT-JNJFOC-20101001994

PATIENT
  Sex: Male

DRUGS (2)
  1. TOPAMAX [Suspect]
     Indication: ILL-DEFINED DISORDER
     Route: 048
  2. PHLOROGLUCINOL [Suspect]
     Indication: ILL-DEFINED DISORDER
     Route: 048

REACTIONS (4)
  - CONFUSIONAL STATE [None]
  - INTENTIONAL OVERDOSE [None]
  - PETIT MAL EPILEPSY [None]
  - SELF INJURIOUS BEHAVIOUR [None]
